FAERS Safety Report 8529398-X (Version None)
Quarter: 2012Q3

REPORT INFORMATION
  Report Type: 
  Country: None (occurrence: None)
  Receive Date: 20120717
  Receipt Date: 20120717
  Transmission Date: 20120928
  Serious: No
  Sender: FDA-Public Use
  Company Number: None

PATIENT

DRUGS (1)
  1. ACETAMINOPHEN [Suspect]
     Dosage: ORAL 100 MG/ML

REACTIONS (2)
  - PRODUCT DOSAGE FORM CONFUSION [None]
  - INCORRECT DOSE ADMINISTERED [None]
